FAERS Safety Report 9238001 (Version 1)
Quarter: 2013Q2

REPORT INFORMATION
  Report Type: Spontaneous
  Country: AU (occurrence: AU)
  Receive Date: 20130418
  Receipt Date: 20130418
  Transmission Date: 20140414
  Serious: Yes (Death)
  Sender: FDA-Public Use
  Company Number: AU-JNJFOC-20130407096

PATIENT
  Age: 68 Year
  Sex: Male

DRUGS (7)
  1. XARELTO [Suspect]
     Indication: CEREBROVASCULAR ACCIDENT PROPHYLAXIS
     Route: 048
     Dates: start: 201302
  2. XARELTO [Suspect]
     Indication: ATRIAL FIBRILLATION
     Route: 048
     Dates: start: 201302
  3. LASIX [Concomitant]
     Route: 065
  4. NEBILET [Concomitant]
     Route: 065
  5. ALDACTONE [Concomitant]
     Route: 065
  6. LIPITOR [Concomitant]
     Route: 065
  7. OLMETEC [Concomitant]
     Route: 065

REACTIONS (1)
  - Myocardial infarction [Fatal]
